FAERS Safety Report 5954313-2 (Version None)
Quarter: 2008Q4

REPORT INFORMATION
  Report Type: 
  Country: None (occurrence: None)
  Receive Date: 20081113
  Receipt Date: 20081113
  Transmission Date: 20090506
  Serious: Yes (Disabling, Other)
  Sender: FDA-Public Use
  Company Number: None

PATIENT
  Age: 32 Year
  Sex: Female
  Weight: 54.4316 kg

DRUGS (1)
  1. PROAIR HFA [Suspect]
     Indication: ASTHMA
     Dosage: 2 PUFFS 5 TIMES A DAY NOW INHAL
     Route: 055

REACTIONS (5)
  - DRUG EFFECT DECREASED [None]
  - DYSPNOEA [None]
  - OROPHARYNGEAL DISCOMFORT [None]
  - PAIN [None]
  - PRODUCT QUALITY ISSUE [None]
